FAERS Safety Report 10688173 (Version 2)
Quarter: 2015Q1

REPORT INFORMATION
  Report Type: Spontaneous
  Country: JP (occurrence: None)
  Receive Date: 20141231
  Receipt Date: 20150317
  Transmission Date: 20150720
  Serious: Yes (Other)
  Sender: FDA-Public Use
  Company Number: JP-20140354

PATIENT
  Age: 76 Year
  Sex: Female

DRUGS (7)
  1. DOTAREM [Suspect]
     Active Substance: GADOTERATE MEGLUMINE
     Indication: CARDIOVASCULAR EXAMINATION
     Dosage: 1 IN 1 D
     Route: 042
     Dates: start: 20141217, end: 20141217
  2. VITAMEDIN(BENFOTIAMINE, CYANOCOBALAMIN, PYRIDOXINE HYDROCHLORIDE) [Concomitant]
  3. ALFACALCIDOL [Concomitant]
     Active Substance: ALFACALCIDOL
  4. TAKEPRON (LANSOPRAZOLE) [Concomitant]
     Active Substance: LANSOPRAZOLE
  5. DOTAREM [Suspect]
     Active Substance: GADOTERATE MEGLUMINE
     Indication: NUCLEAR MAGNETIC RESONANCE IMAGING
     Dosage: 1 IN 1 D
     Route: 042
     Dates: start: 20141217, end: 20141217
  6. MAGLAX (MAGNESIUM OXIDE) [Concomitant]
     Active Substance: MAGNESIUM OXIDE
  7. MIDODRINE HYDROCHLORIDE(MIDODRINE HYDROCHLORIDE) [Concomitant]

REACTIONS (11)
  - Vomiting [None]
  - Presyncope [None]
  - Cold sweat [None]
  - Blood pressure decreased [None]
  - Atrial fibrillation [None]
  - Chills [None]
  - Nausea [None]
  - Dyspnoea [None]
  - Headache [None]
  - Feeling abnormal [None]
  - Anaphylactic reaction [None]

NARRATIVE: CASE EVENT DATE: 20141217
